FAERS Safety Report 14457571 (Version 1)
Quarter: 2018Q1

REPORT INFORMATION
  Report Type: Spontaneous
  Country: US (occurrence: US)
  Receive Date: 20180130
  Receipt Date: 20180130
  Transmission Date: 20180509
  Serious: No
  Sender: FDA-Public Use
  Company Number: US-PFIZER INC-2018038163

PATIENT
  Age: 67 Year
  Sex: Female

DRUGS (6)
  1. TYLENOL [Concomitant]
     Active Substance: ACETAMINOPHEN
     Dosage: 325 MG, UNK
  2. LETROZOLE. [Concomitant]
     Active Substance: LETROZOLE
     Dosage: 2.5 MG, UNK
  3. LEVOTHYROXIN [Concomitant]
     Active Substance: LEVOTHYROXINE
     Dosage: 88 UG, UNK
  4. ZOMETA [Concomitant]
     Active Substance: ZOLEDRONIC ACID
     Dosage: UNK (SOL 4MG/100ML)
  5. SIMVASTATIN. [Concomitant]
     Active Substance: SIMVASTATIN
     Dosage: 20 MG, UNK
  6. IBRANCE [Suspect]
     Active Substance: PALBOCICLIB
     Indication: BREAST CANCER FEMALE
     Dosage: 125 MG, CYCLIC ( TAKE ONE CAPSULE BY MOUTH ONCE DAILY WITH FOOD FOR 21 DAYS, THEN 7 DAYS OFF)
     Route: 048
     Dates: start: 201710

REACTIONS (1)
  - White blood cell count decreased [Not Recovered/Not Resolved]
